FAERS Safety Report 18656531 (Version 1)
Quarter: 2020Q4

REPORT INFORMATION
  Report Type: Report from Study
  Country: US (occurrence: US)
  Receive Date: 20201224
  Receipt Date: 20201224
  Transmission Date: 20210114
  Serious: Yes (Life-Threatening, Hospitalization, Other)
  Sender: FDA-Public Use
  Company Number: US-BAXTER-2020BAX019612

PATIENT
  Age: 13 Year
  Sex: Female
  Weight: 60.8 kg

DRUGS (35)
  1. CYTARABINE. [Suspect]
     Active Substance: CYTARABINE
     Indication: B-CELL TYPE ACUTE LEUKAEMIA
     Dosage: DAYS 1-4, 8-11, 29-32, AND 36-39, DURATION: 1 MONTH 24 DAYS
     Route: 042
     Dates: start: 20200701, end: 20200824
  2. METHOTREXATE. [Suspect]
     Active Substance: METHOTREXATE
     Indication: B-CELL TYPE ACUTE LEUKAEMIA
     Dosage: DAYS 1, 8, 15, AND 22
     Route: 037
     Dates: start: 20200701, end: 20200724
  3. PEGASPARGASE [Suspect]
     Active Substance: PEGASPARGASE
     Dosage: LAST DOSE PRIOR TO SAE^S OF GI DISORDERS, OTHER - ORAL LESIONS; GRADE 2, NAUSEA; GRADE 2, DEHYDRATIO
     Route: 042
  4. OXYCODONE [Concomitant]
     Active Substance: OXYCODONE
     Indication: PRODUCT USED FOR UNKNOWN INDICATION
     Route: 065
     Dates: start: 20200518
  5. PROCHLORPERAZINE. [Concomitant]
     Active Substance: PROCHLORPERAZINE
     Indication: PRODUCT USED FOR UNKNOWN INDICATION
     Route: 065
     Dates: start: 20200923
  6. NALOXONE [Concomitant]
     Active Substance: NALOXONE
     Indication: PRODUCT USED FOR UNKNOWN INDICATION
     Route: 065
     Dates: start: 20200905
  7. VORICONAZOLE. [Concomitant]
     Active Substance: VORICONAZOLE
     Indication: PRODUCT USED FOR UNKNOWN INDICATION
     Route: 065
     Dates: start: 20200911
  8. CYCLOPHOSPHAMIDE FOR INJECTION, USP [Suspect]
     Active Substance: CYCLOPHOSPHAMIDE
     Dosage: LAST DOSE PRIOR TO SAE
     Route: 042
     Dates: start: 20200814, end: 20200814
  9. METHOCARBAMOL. [Concomitant]
     Active Substance: METHOCARBAMOL
     Indication: PRODUCT USED FOR UNKNOWN INDICATION
     Route: 065
     Dates: start: 20200923
  10. CYTARABINE. [Suspect]
     Active Substance: CYTARABINE
     Dosage: LAST DOSE PRIOR TO SAE
     Route: 042
     Dates: start: 20200824, end: 20200824
  11. MERCAPTOPURINE. [Suspect]
     Active Substance: MERCAPTOPURINE
     Indication: B-CELL TYPE ACUTE LEUKAEMIA
     Dosage: DOSAGE FORM: TABLET, FIRST DOSE (MONDAY-FRIDAY), DURATION: 1 MONTH 27 DAYS
     Route: 048
     Dates: start: 20200701, end: 20200827
  12. PEGASPARGASE [Suspect]
     Active Substance: PEGASPARGASE
     Dosage: LAST DOSE PRIOR TO SAE FEBRILE NEUTROPENIA, ENCEPHALOPATHY, SOMNOLENCE, SUSPECTED UTI, DEHYDRATION (
     Route: 042
     Dates: start: 20200828, end: 20200828
  13. SULFAMETHOXAZOLE; TRIMETHOPRIM [Concomitant]
     Active Substance: SULFAMETHOXAZOLE\TRIMETHOPRIM
     Indication: PRODUCT USED FOR UNKNOWN INDICATION
     Route: 065
     Dates: start: 20200521
  14. ONDANSETRON [Concomitant]
     Active Substance: ONDANSETRON
     Indication: PRODUCT USED FOR UNKNOWN INDICATION
     Route: 065
     Dates: start: 20200518
  15. LORAZEPAM. [Concomitant]
     Active Substance: LORAZEPAM
     Indication: PRODUCT USED FOR UNKNOWN INDICATION
     Route: 065
     Dates: start: 20200602
  16. PENTAMIDINE [Concomitant]
     Active Substance: PENTAMIDINE
     Indication: PRODUCT USED FOR UNKNOWN INDICATION
     Route: 065
     Dates: start: 20200913
  17. MERCAPTOPURINE. [Suspect]
     Active Substance: MERCAPTOPURINE
     Dosage: DOSAGE FORM: TABLET, (SATURDAY-SUNDAY), DURATION: 1 MONTH 27 DAYS
     Route: 048
     Dates: start: 20200701, end: 20200827
  18. INCB018424 [Suspect]
     Active Substance: RUXOLITINIB
     Indication: B-CELL TYPE ACUTE LEUKAEMIA
     Dosage: DOSAGE FORM: TABLET, DURATION: 1 MONTH 28 DAYS
     Route: 048
     Dates: start: 20200701, end: 20200828
  19. VINCRISTINE [Suspect]
     Active Substance: VINCRISTINE
     Dosage: LAST DOSE PRIOR TO SAE^S OF FEBRILE NEUTROPENIA, ENCEPHALOPATHY, SOMNOLENCE, SUSPECTED UTI, DEHYDRAT
     Route: 042
     Dates: start: 20200828, end: 20200828
  20. VINCRISTINE [Suspect]
     Active Substance: VINCRISTINE
     Dosage: LAST DOSE PRIOR TO SAE^S OF GI DISORDERS, OTHER - ORAL LESIONS; GRADE 2, NAUSEA; GRADE 2, DEHYDRATIO
     Route: 042
  21. DIPHENHYDRAMINE. [Concomitant]
     Active Substance: DIPHENHYDRAMINE
     Indication: PRODUCT USED FOR UNKNOWN INDICATION
     Route: 065
     Dates: start: 20200602
  22. METOCLOPRAMIDE. [Concomitant]
     Active Substance: METOCLOPRAMIDE
     Indication: PRODUCT USED FOR UNKNOWN INDICATION
     Route: 065
     Dates: start: 20200602
  23. ACICLOVIR [Concomitant]
     Active Substance: ACYCLOVIR
     Indication: PRODUCT USED FOR UNKNOWN INDICATION
     Route: 065
     Dates: start: 20200908
  24. PEGASPARGASE [Suspect]
     Active Substance: PEGASPARGASE
     Indication: B-CELL TYPE ACUTE LEUKAEMIA
     Dosage: DAYS 15 AND 43
     Route: 042
     Dates: start: 20200717
  25. VINCRISTINE [Concomitant]
     Active Substance: VINCRISTINE
     Indication: PRODUCT USED FOR UNKNOWN INDICATION
     Route: 065
     Dates: start: 20201005
  26. PHENAZOPYRIDINE. [Concomitant]
     Active Substance: PHENAZOPYRIDINE
     Indication: PRODUCT USED FOR UNKNOWN INDICATION
     Route: 065
     Dates: start: 20200904
  27. VINCRISTINE [Suspect]
     Active Substance: VINCRISTINE
     Indication: B-CELL TYPE ACUTE LEUKAEMIA
     Dosage: DAYS 15, 22, AND 43, DURATION: 1 MONTH 12 DAYS
     Route: 042
     Dates: start: 20200717, end: 20200828
  28. CYTARABINE. [Concomitant]
     Active Substance: CYTARABINE
     Indication: PRODUCT USED FOR UNKNOWN INDICATION
     Route: 065
     Dates: start: 20201005
  29. HYDROMORPHONE [Concomitant]
     Active Substance: HYDROMORPHONE
     Indication: PRODUCT USED FOR UNKNOWN INDICATION
     Route: 065
     Dates: start: 20200910
  30. METHOTREXATE. [Suspect]
     Active Substance: METHOTREXATE
     Dosage: LAST DOSE PRIOR TO SAE
     Route: 037
     Dates: start: 20200724, end: 20200724
  31. MERCAPTOPURINE. [Suspect]
     Active Substance: MERCAPTOPURINE
     Dosage: DOSAGE FORM: TABLET, FIRST DOSE (MONDAY-FRIDAY). LAST DOSE PRIOR TO SAE
     Route: 048
     Dates: start: 20200827, end: 20200827
  32. POSACONAZOLE [Concomitant]
     Active Substance: POSACONAZOLE
     Indication: PRODUCT USED FOR UNKNOWN INDICATION
     Route: 065
     Dates: start: 20200914
  33. CYCLOPHOSPHAMIDE FOR INJECTION, USP [Suspect]
     Active Substance: CYCLOPHOSPHAMIDE
     Indication: B-CELL TYPE ACUTE LEUKAEMIA
     Dosage: DURATION: 1 MONTH 14 DAYS, DAYS 1 AND 29
     Route: 042
     Dates: start: 20200701, end: 20200814
  34. INCB018424 [Suspect]
     Active Substance: RUXOLITINIB
     Dosage: DOSAGE FORM: TABLET, LAST DOSE PRIOR TO SAE
     Route: 048
     Dates: start: 20200828, end: 20200828
  35. OXYBUTYNIN. [Concomitant]
     Active Substance: OXYBUTYNIN CHLORIDE
     Indication: PRODUCT USED FOR UNKNOWN INDICATION
     Route: 065
     Dates: start: 20200904

REACTIONS (12)
  - Hypokalaemia [Recovered/Resolved]
  - Gait disturbance [Recovering/Resolving]
  - Tremor [Recovering/Resolving]
  - Somnolence [Not Recovered/Not Resolved]
  - Constipation [Recovered/Resolved]
  - Nausea [Recovering/Resolving]
  - Febrile neutropenia [Recovered/Resolved]
  - Encephalopathy [Recovered/Resolved]
  - Urinary tract infection [Not Recovered/Not Resolved]
  - Oral disorder [Recovered/Resolved with Sequelae]
  - Dehydration [Not Recovered/Not Resolved]
  - Dehydration [Not Recovered/Not Resolved]

NARRATIVE: CASE EVENT DATE: 20200902
